FAERS Safety Report 10135051 (Version 1)
Quarter: 2014Q2

REPORT INFORMATION
  Report Type: Spontaneous
  Country: GB (occurrence: GB)
  Receive Date: 20140428
  Receipt Date: 20140428
  Transmission Date: 20141212
  Serious: Yes (Other)
  Sender: FDA-Public Use
  Company Number: GB-WATSON-2014-08315

PATIENT
  Age: 54 Year
  Sex: Female
  Weight: 74 kg

DRUGS (2)
  1. TRIMETHOPRIM (UNKNOWN) [Suspect]
     Indication: CYSTITIS
     Dosage: 200 MG, BID
     Route: 048
     Dates: start: 20140325, end: 20140328
  2. AMOXICILLIN [Concomitant]
     Indication: GINGIVITIS
     Dosage: UNK
     Route: 065
     Dates: start: 201402

REACTIONS (2)
  - Arthralgia [Recovered/Resolved with Sequelae]
  - Joint swelling [Recovered/Resolved with Sequelae]
